FAERS Safety Report 8599135-1 (Version None)
Quarter: 2012Q3

REPORT INFORMATION
  Report Type: 
  Country: None (occurrence: None)
  Receive Date: 20120816
  Receipt Date: 19940117
  Transmission Date: 20120928
  Serious: Yes (Other)
  Sender: FDA-Public Use
  Company Number: US-ROCHE-1101615

PATIENT
  Sex: Male

DRUGS (14)
  1. AXID [Concomitant]
     Route: 048
  2. PERSANTINE [Concomitant]
     Route: 048
  3. AMITRIPTYLINE HCL [Concomitant]
     Route: 048
  4. ASPIRIN [Concomitant]
     Dosage: DAILY
     Route: 048
  5. SELDANE-D [Concomitant]
     Route: 048
  6. NITROGLYCERIN [Concomitant]
     Route: 060
  7. XANAX [Concomitant]
  8. ACTIVASE [Suspect]
     Dosage: 100CC/HR
     Route: 042
  9. MEVACOR [Concomitant]
     Route: 048
  10. COLESTID [Concomitant]
  11. MORPHINE [Concomitant]
  12. ACTIVASE [Suspect]
     Indication: MYOCARDIAL INFARCTION
     Route: 042
  13. ADVIL [Concomitant]
  14. NITROGLYCERIN [Concomitant]
     Route: 042

REACTIONS (2)
  - BACK PAIN [None]
  - VENTRICULAR EXTRASYSTOLES [None]
